FAERS Safety Report 15090722 (Version 2)
Quarter: 2019Q3

REPORT INFORMATION
  Report Type: Spontaneous
  Country: GB (occurrence: GB)
  Receive Date: 20180629
  Receipt Date: 20190820
  Transmission Date: 20191004
  Serious: Yes (Other)
  Sender: FDA-Public Use
  Company Number: GB-TEVA-2018-GB-916452

PATIENT
  Age: 1 Hour
  Sex: Male
  Weight: 2.84 kg

DRUGS (2)
  1. CLOZAPINE. [Suspect]
     Active Substance: CLOZAPINE
     Dosage: 600 MILLIGRAM DAILY; 200 MG IN THE MORNING. 400 MG AT NIGHT.
     Route: 064
  2. PAROXETINE. [Suspect]
     Active Substance: PAROXETINE
     Dosage: 50 MILLIGRAM DAILY; IN THE MORNING.
     Route: 064

REACTIONS (5)
  - Somnolence neonatal [Unknown]
  - Infantile back arching [Unknown]
  - Foetal exposure during pregnancy [Unknown]
  - Neonatal respiratory distress [Unknown]
  - Extrapyramidal disorder [Recovered/Resolved with Sequelae]
